FAERS Safety Report 18776889 (Version 1)
Quarter: 2021Q1

REPORT INFORMATION
  Report Type: Spontaneous
  Country: US (occurrence: US)
  Receive Date: 20210122
  Receipt Date: 20210122
  Transmission Date: 20210419
  Serious: Yes (Other)
  Sender: FDA-Public Use
  Company Number: US-SA-2021SA016012

PATIENT
  Sex: Female

DRUGS (1)
  1. AUBAGIO [Suspect]
     Active Substance: TERIFLUNOMIDE
     Indication: DERMATITIS ATOPIC
     Dosage: UNK

REACTIONS (2)
  - Anti-neutrophil cytoplasmic antibody positive vasculitis [Unknown]
  - Product use in unapproved indication [Unknown]
